FAERS Safety Report 12613746 (Version 1)
Quarter: 2016Q3

REPORT INFORMATION
  Report Type: Spontaneous
  Country: US (occurrence: None)
  Receive Date: 20160801
  Receipt Date: 20160801
  Transmission Date: 20161109
  Serious: Yes (Other)
  Sender: FDA-Public Use
  Company Number: None

PATIENT
  Age: 78 Year
  Sex: Female
  Weight: 90.72 kg

DRUGS (2)
  1. TYLENOLD [Concomitant]
  2. ZETIA [Suspect]
     Active Substance: EZETIMIBE
     Indication: BLOOD CHOLESTEROL
     Dosage: 1 TABLET ONCE A DAY

REACTIONS (3)
  - Gastric haemorrhage [None]
  - Joint range of motion decreased [None]
  - Gait disturbance [None]

NARRATIVE: CASE EVENT DATE: 20160420
